FAERS Safety Report 5044967-X (Version None)
Quarter: 2006Q3

REPORT INFORMATION
  Report Type: 
  Country: None (occurrence: None)
  Receive Date: 20060705
  Receipt Date: 20060613
  Transmission Date: 20061208
  Serious: No
  Sender: FDA-Public Use
  Company Number: US200606000343

PATIENT
  Age: 39 Year
  Sex: Female
  Weight: 151 kg

DRUGS (7)
  1. CYMBALTA [Suspect]
     Indication: DEPRESSION
     Dosage: 30 MG ORAL
     Route: 048
     Dates: start: 20060503, end: 20060510
  2. NSAID'S [Concomitant]
  3. ANGIOTENSIN II [Concomitant]
  4. BETA BLOCKING AGENTS [Concomitant]
  5. TOPAMAX /AUS/ (TOPIRAMATE) [Concomitant]
  6. WELLBUTRIN [Concomitant]
  7. ESTRADIOL COMBINATIONS [Concomitant]

REACTIONS (4)
  - ALANINE AMINOTRANSFERASE INCREASED [None]
  - ASPARTATE AMINOTRANSFERASE INCREASED [None]
  - SOMNOLENCE [None]
  - URINARY RETENTION [None]
